FAERS Safety Report 7028808-7 (Version None)
Quarter: 2010Q4

REPORT INFORMATION
  Report Type: 
  Country: None (occurrence: None)
  Receive Date: 20101005
  Receipt Date: 20100924
  Transmission Date: 20110411
  Serious: Yes (Other)
  Sender: FDA-Public Use
  Company Number: NL-BAYER-201040636GPV

PATIENT
  Age: 8 Month
  Sex: Female

DRUGS (4)
  1. FLUDARABINE [Suspect]
     Indication: STEM CELL TRANSPLANT
  2. THIOTEPA [Suspect]
     Indication: STEM CELL TRANSPLANT
  3. THEOPHYLLINE [Suspect]
     Indication: STEM CELL TRANSPLANT
  4. ANTI-THYMOCYTE GLOBULIN NOS [Suspect]
     Indication: STEM CELL TRANSPLANT

REACTIONS (3)
  - ASCITES [None]
  - EPSTEIN-BARR VIRUS INFECTION [None]
  - GRAFT VERSUS HOST DISEASE [None]
